FAERS Safety Report 8620785-8 (Version None)
Quarter: 2012Q3

REPORT INFORMATION
  Report Type: 
  Country: None (occurrence: None)
  Receive Date: 20120816
  Receipt Date: 20120816
  Transmission Date: 20120928
  Serious: Yes (Death)
  Sender: FDA-Public Use
  Company Number: None

PATIENT
  Age: 56 Year
  Sex: Female
  Weight: 77.1115 kg

DRUGS (7)
  1. TROSPIUM-SANCTURA [Concomitant]
  2. SOLIFENACIN SUCCINATE [Concomitant]
  3. NEUPRO [Suspect]
     Indication: PARKINSON'S DISEASE
     Dosage: 1 PATCH, DAILY, TRANSDERMAL
     Route: 062
     Dates: start: 20120725, end: 20120803
  4. EFFEXOR [Concomitant]
  5. RASAGILINE-AZILECT [Concomitant]
  6. SINEMET [Concomitant]
  7. SINEMET [Concomitant]

REACTIONS (5)
  - CONFUSIONAL STATE [None]
  - SOMNOLENCE [None]
  - FALL [None]
  - THROMBOSIS [None]
  - RESUSCITATION [None]
